FAERS Safety Report 4399285-X (Version None)
Quarter: 2004Q3

REPORT INFORMATION
  Report Type: 
  Country: None (occurrence: None)
  Receive Date: 20040712
  Receipt Date: 20040614
  Transmission Date: 20050211
  Serious: Yes (Hospitalization)
  Sender: FDA-Public Use
  Company Number: 2003-00600FE

PATIENT
  Age: 30 Year
  Sex: Male

DRUGS (1)
  1. PENTASA [Suspect]
     Indication: COLITIS ULCERATIVE
     Dosage: 2250 MG ORALLY
     Route: 048
     Dates: start: 20020322

REACTIONS (5)
  - COLITIS ULCERATIVE [None]
  - EOSINOPHILIC PNEUMONIA [None]
  - FOCAL NODULAR HYPERPLASIA [None]
  - NODULAR REGENERATIVE HYPERPLASIA [None]
  - RED BLOOD CELL SEDIMENTATION RATE INCREASED [None]
